FAERS Safety Report 24562763 (Version 1)
Quarter: 2024Q4

REPORT INFORMATION
  Report Type: Spontaneous
  Country: CZ (occurrence: CZ)
  Receive Date: 20241029
  Receipt Date: 20241029
  Transmission Date: 20250115
  Serious: Yes (Other)
  Sender: SANDOZ
  Company Number: CZ-SANDOZ-SDZ2024CZ089845

PATIENT
  Age: 67 Year
  Sex: Female
  Weight: 67 kg

DRUGS (15)
  1. MIDAZOLAM HYDROCHLORIDE [Suspect]
     Active Substance: MIDAZOLAM HYDROCHLORIDE
     Indication: Postoperative delirium
     Dosage: LOW DOSE
     Route: 065
  2. ZOLPIDEM TARTRATE [Suspect]
     Active Substance: ZOLPIDEM TARTRATE
     Indication: Product used for unknown indication
     Dosage: 10 MG 2 TABLETS AT NIGHT
     Route: 065
  3. ALPRAZOLAM [Concomitant]
     Active Substance: ALPRAZOLAM
     Indication: Product used for unknown indication
     Dosage: 1 MG 1 TABLET IN EVENING
     Route: 065
  4. BETAXOLOL [Concomitant]
     Active Substance: BETAXOLOL
     Indication: Product used for unknown indication
     Dosage: UNKNOWN
     Route: 065
  5. BROMAZEPAM [Concomitant]
     Active Substance: BROMAZEPAM
     Indication: Product used for unknown indication
     Dosage: 3 MG 1-1-1
     Route: 065
  6. DANTROLENE [Concomitant]
     Active Substance: DANTROLENE
     Indication: Product used for unknown indication
     Dosage: 2.5 MG/KG BODY WEIGHT
     Route: 065
  7. DIOSMIN\HESPERIDIN [Concomitant]
     Active Substance: DIOSMIN\HESPERIDIN
     Indication: Product used for unknown indication
     Dosage: UNK
     Route: 065
  8. DEXMEDETOMIDINE [Concomitant]
     Active Substance: DEXMEDETOMIDINE
     Indication: Product used for unknown indication
     Dosage: UNKNOWN
     Route: 065
  9. DIAZEPAM [Concomitant]
     Active Substance: DIAZEPAM
     Indication: Product used for unknown indication
     Dosage: TITRATED TO A TOTAL DOSE OF 30 MG INTRAVENOUSLY
     Route: 042
  10. Isolyte [Concomitant]
     Indication: Product used for unknown indication
     Dosage: INTRAVENOUS ADMINISTRATION OF CRYSTALLOIDS (ISOLYTE 500 ML + A TOTAL OF 450 ML OF PHYSIOLOGICAL SOLU
     Route: 042
  11. MELPERONE [Concomitant]
     Active Substance: MELPERONE
     Indication: Product used for unknown indication
     Dosage: TBL. 25 MG 1-1-1-2
     Route: 065
  12. METAMIZOLE [Concomitant]
     Active Substance: METAMIZOLE
     Indication: Product used for unknown indication
     Dosage: 1 G OF METAMIZOLE WAS GIVEN I.V.
     Route: 042
  13. OLANZAPINE [Concomitant]
     Active Substance: OLANZAPINE
     Indication: Product used for unknown indication
     Dosage: TABL. 5 MG 0-1-0-1
     Route: 065
  14. SODIUM BICARBONATE [Concomitant]
     Active Substance: SODIUM BICARBONATE
     Indication: Polyuria
     Dosage: UNKNOWN
     Route: 065
  15. TIAPRIDE [Concomitant]
     Active Substance: TIAPRIDE
     Indication: Product used for unknown indication
     Dosage: 100 MG ? 2 TABLETS P.O
     Route: 048

REACTIONS (2)
  - Hypotension [Unknown]
  - Drug abuse [Unknown]
